FAERS Safety Report 14911641 (Version 2)
Quarter: 2019Q1

REPORT INFORMATION
  Report Type: Report from Study
  Country: US (occurrence: US)
  Receive Date: 20180518
  Receipt Date: 20190311
  Transmission Date: 20190417
  Serious: No
  Sender: FDA-Public Use
  Company Number: PHEH2018US018491

PATIENT
  Sex: Female
  Weight: 121.1 kg

DRUGS (1)
  1. GLATOPA [Suspect]
     Active Substance: GLATIRAMER ACETATE
     Indication: MULTIPLE SCLEROSIS
     Dosage: 20 MG, QD (ROTATES SITE)
     Route: 058

REACTIONS (2)
  - Dermatitis allergic [Unknown]
  - Skin discolouration [Not Recovered/Not Resolved]
